FAERS Safety Report 19251996 (Version 1)
Quarter: 2021Q2

REPORT INFORMATION
  Report Type: Spontaneous
  Country: US (occurrence: US)
  Receive Date: 20210512
  Receipt Date: 20210512
  Transmission Date: 20210717
  Serious: Yes (Other)
  Sender: FDA-Public Use
  Company Number: None

PATIENT
  Age: 56 Year
  Sex: Female
  Weight: 97.2 kg

DRUGS (7)
  1. VENTOLIN INHALER 2 PUFFS AS NEEDED [Concomitant]
  2. DICLOFENAC 75 MG PRN [Concomitant]
  3. OXYBUTYNIN 10 MG PRN [Concomitant]
  4. CRESTOR [Concomitant]
     Active Substance: ROSUVASTATIN CALCIUM
  5. SERTRALINE [Suspect]
     Active Substance: SERTRALINE HYDROCHLORIDE
     Indication: MAJOR DEPRESSION
     Dates: start: 20210203, end: 20210419
  6. REQUIP [Concomitant]
     Active Substance: ROPINIROLE HYDROCHLORIDE
  7. PANTOPRAZOLE 40MG DAILY [Concomitant]

REACTIONS (2)
  - Product substitution issue [None]
  - Urticaria [None]

NARRATIVE: CASE EVENT DATE: 20210203
